FAERS Safety Report 9862461 (Version 5)
Quarter: 2015Q2

REPORT INFORMATION
  Report Type: Spontaneous
  Country: DE (occurrence: DE)
  Receive Date: 20140203
  Receipt Date: 20150626
  Transmission Date: 20150821
  Serious: Yes (Other)
  Sender: FDA-Public Use
  Company Number: DE-UCBSA-100205

PATIENT
  Sex: Female
  Weight: 85 kg

DRUGS (2)
  1. CIMZIA [Suspect]
     Active Substance: CERTOLIZUMAB PEGOL
     Indication: RHEUMATOID ARTHRITIS
     Dosage: 200 MG, EV 2 WEEKS(QOW)
     Route: 058
     Dates: start: 20121128
  2. QUENSYL [Concomitant]
     Active Substance: HYDROXYCHLOROQUINE
     Indication: RHEUMATOID ARTHRITIS
     Route: 048
     Dates: start: 20130620

REACTIONS (3)
  - Pregnancy [Recovered/Resolved]
  - Pregnancy with contraceptive device [Unknown]
  - Breast feeding [Unknown]

NARRATIVE: CASE EVENT DATE: 2013
